FAERS Safety Report 15749252 (Version 2)
Quarter: 2019Q2

REPORT INFORMATION
  Report Type: Spontaneous
  Country: US (occurrence: US)
  Receive Date: 20181221
  Receipt Date: 20190411
  Transmission Date: 20190711
  Serious: No
  Sender: FDA-Public Use
  Company Number: US-PFIZER INC-2018521184

PATIENT
  Age: 58 Year
  Sex: Female

DRUGS (10)
  1. XELJANZ XR [Suspect]
     Active Substance: TOFACITINIB CITRATE
     Indication: PSORIASIS
  2. BETAMETHASONE DIPROPIONATE. [Concomitant]
     Active Substance: BETAMETHASONE DIPROPIONATE
     Dosage: DAILY A THIN LAYER TO THE AFFECTED AREA
     Route: 061
  3. OTEZLA [Concomitant]
     Active Substance: APREMILAST
     Dosage: 1 TABLET (30MG) 2 TIMES EVERY DAY APPROXIMATELY 12 HOURS APART
     Route: 048
  4. LOSARTAN. [Concomitant]
     Active Substance: LOSARTAN
     Dosage: 1 TABLET (25MG) DAILY
     Route: 048
  5. ANUSOL-HC [HYDROCORTISONE ACETATE] [Concomitant]
     Dosage: 2X/DAY (WITH PERINEA! APPLICATOR TO THE AFFECTED AREA)
     Route: 061
  6. XELJANZ XR [Suspect]
     Active Substance: TOFACITINIB CITRATE
     Indication: ARTHRALGIA
  7. XELJANZ XR [Suspect]
     Active Substance: TOFACITINIB CITRATE
     Indication: PSORIATIC ARTHROPATHY
     Dosage: 11 MG, DAILY
     Route: 048
     Dates: start: 201807, end: 20181010
  8. SIMVASTATIN. [Concomitant]
     Active Substance: SIMVASTATIN
     Dosage: 1 TABLET (40MG) DAILY IN THE EVENING
     Route: 048
  9. NYSTATIN AND TRIAMCINOLONE [Concomitant]
     Active Substance: NYSTATIN\TRIAMCINOLONE ACETONIDE
     Dosage: 2X/DAY TO THE AFFECTED AREA(S) IN THE MORNING AND EVENING
     Route: 061
  10. METFORMIN HCL [Concomitant]
     Active Substance: METFORMIN HYDROCHLORIDE
     Dosage: 1 TABLET (1000MG) 2 TIMES EVERY DAY WITH MORNING AND EVENING MEALS
     Route: 048

REACTIONS (1)
  - Drug ineffective [Unknown]

NARRATIVE: CASE EVENT DATE: 201807
